FAERS Safety Report 19489185 (Version 1)
Quarter: 2021Q3

REPORT INFORMATION
  Report Type: Spontaneous
  Country: DE (occurrence: DE)
  Receive Date: 20210703
  Receipt Date: 20210703
  Transmission Date: 20211014
  Serious: Yes (Hospitalization)
  Sender: FDA-Public Use
  Company Number: DE-TEVA-2021-DE-1928414

PATIENT
  Age: 68 Year
  Sex: Male
  Weight: 62 kg

DRUGS (12)
  1. CANDECOR COMP. 16MG/12,5MG [Concomitant]
     Dosage: 1 DOSAGE FORMS DAILY; 16|12.5 MG, 1?0?0?0,
     Route: 048
  2. KREON 25000E. [Concomitant]
     Dosage: 75000 IU (INTERNATIONAL UNIT) DAILY; 1?1?1?0
     Route: 048
  3. OXALIPLATIN. [Suspect]
     Active Substance: OXALIPLATIN
     Dosage: ACCORDING TO THE SCHEME, INJECTION / INFUSION SOLUTION
     Route: 042
  4. PANTOPRAZOL [Concomitant]
     Active Substance: PANTOPRAZOLE SODIUM
     Dosage: 40 MILLIGRAM DAILY; 1?0?0?0
     Route: 048
  5. NOVORAPID 1000E. 100E./ML [Concomitant]
     Dosage: ACCORDING TO THE SCHEME, INJECTION / INFUSION SOLUTION
     Route: 058
  6. ENOXAPARIN [Concomitant]
     Active Substance: ENOXAPARIN
     Dosage: .4 ML DAILY;  0?0?1?0, SOLUTION FOR INJECTION / INFUSION
     Route: 058
  7. IRINOTECAN [Suspect]
     Active Substance: IRINOTECAN
     Dosage: ACCORDING TO THE SCHEME, INJECTION / INFUSION SOLUTION
     Route: 042
  8. TOUJEO [Concomitant]
     Active Substance: INSULIN GLARGINE
     Dosage: 6 DOSAGE FORMS DAILY; 0?0?0?6, SOLUTION FOR INJECTION / INFUSION
     Route: 058
  9. LOPERAMID AL AKUT [Concomitant]
     Dosage: IF NECESSARY
     Route: 048
  10. CALCIUMFOLINAT [Concomitant]
     Active Substance: LEUCOVORIN CALCIUM
     Dosage: ACCORDING TO THE SCHEME, INJECTION / INFUSION SOLUTION
     Route: 042
  11. LIPEGFILGRASTIM [Concomitant]
     Active Substance: LIPEGFILGRASTIM
     Dosage: ACCORDING TO THE SCHEME, INJECTION / INFUSION SOLUTION
     Route: 058
  12. FLUOROURACIL. [Suspect]
     Active Substance: FLUOROURACIL
     Dosage: ACCORDING TO THE SCHEME, INJECTION / INFUSION SOLUTION
     Route: 042

REACTIONS (2)
  - Pyrexia [Unknown]
  - Fatigue [Unknown]
